FAERS Safety Report 7904673-8 (Version None)
Quarter: 2011Q4

REPORT INFORMATION
  Report Type: 
  Country: None (occurrence: None)
  Receive Date: 20111109
  Receipt Date: 20111102
  Transmission Date: 20120403
  Serious: Yes (Other)
  Sender: FDA-Public Use
  Company Number: FR-GLAXOSMITHKLINE-B0735037A

PATIENT
  Age: 12 Year
  Sex: Female

DRUGS (1)
  1. MALARONE [Suspect]
     Indication: PROPHYLAXIS
     Dosage: 1TAB PER DAY
     Route: 048
     Dates: start: 20110707, end: 20110722

REACTIONS (6)
  - VOMITING [None]
  - JAUNDICE [None]
  - PYREXIA [None]
  - DIARRHOEA [None]
  - OCULAR ICTERUS [None]
  - DECREASED APPETITE [None]
